FAERS Safety Report 7032818-3 (Version None)
Quarter: 2010Q4

REPORT INFORMATION
  Report Type: 
  Country: None (occurrence: None)
  Receive Date: 20101005
  Receipt Date: 20070627
  Transmission Date: 20110411
  Serious: Yes (Death, Hospitalization)
  Sender: FDA-Public Use
  Company Number: 2007PV000009

PATIENT
  Age: 53 Year
  Sex: Female

DRUGS (6)
  1. DEPOCYT [Suspect]
     Indication: ACUTE LYMPHOCYTIC LEUKAEMIA RECURRENT
     Dosage: 50 MG; QM; INTH
     Route: 037
     Dates: start: 20061031, end: 20070227
  2. TORSEMIDE [Concomitant]
  3. LEVOTHYROXINE SODIUM [Concomitant]
  4. LYRICA [Concomitant]
  5. GANCICLOVIR [Concomitant]
  6. DASATINIB [Concomitant]

REACTIONS (6)
  - ACUTE LYMPHOCYTIC LEUKAEMIA [None]
  - BRAIN OEDEMA [None]
  - DIZZINESS [None]
  - MUSCULAR WEAKNESS [None]
  - PROCTALGIA [None]
  - PROGRESSIVE MULTIFOCAL LEUKOENCEPHALOPATHY [None]
